FAERS Safety Report 9432055 (Version 4)
Quarter: 2014Q2

REPORT INFORMATION
  Report Type: Spontaneous
  Country: US (occurrence: US)
  Receive Date: 20130731
  Receipt Date: 20140415
  Transmission Date: 20141212
  Serious: Yes (Other)
  Sender: FDA-Public Use
  Company Number: US-BAYER-2013-090301

PATIENT
  Age: 43 Year
  Sex: Female

DRUGS (3)
  1. MIRENA [Suspect]
     Indication: MENORRHAGIA
     Dosage: 20 MCG/24HR, CONT
     Route: 015
     Dates: start: 20130318, end: 20130726
  2. MIRENA [Suspect]
     Indication: PELVIC PAIN
  3. MIRENA [Suspect]
     Indication: CONTRACEPTION

REACTIONS (7)
  - Rectal haemorrhage [None]
  - Medical device complication [Not Recovered/Not Resolved]
  - Ovarian cyst [None]
  - Uterine leiomyoma [None]
  - Procedural pain [None]
  - Pain [Not Recovered/Not Resolved]
  - Drug ineffective for unapproved indication [None]
